FAERS Safety Report 9283598 (Version 1)
Quarter: 2013Q2

REPORT INFORMATION
  Report Type: Spontaneous
  Country: US (occurrence: US)
  Receive Date: 20130510
  Receipt Date: 20130510
  Transmission Date: 20140414
  Serious: Yes (Hospitalization, Other)
  Sender: FDA-Public Use
  Company Number: US-B.I. PHARMACEUTICALS,INC./RIDGEFIELD-2013-BI-13020BP

PATIENT
  Age: 22 Year
  Sex: Male

DRUGS (1)
  1. PRADAXA [Suspect]
     Dates: start: 201103

REACTIONS (3)
  - Respiratory failure [Unknown]
  - Peripheral embolism [Unknown]
  - Compartment syndrome [Unknown]
